FAERS Safety Report 11555070 (Version 1)
Quarter: 2015Q3

REPORT INFORMATION
  Report Type: Spontaneous
  Country: US (occurrence: US)
  Receive Date: 20150903
  Receipt Date: 20150903
  Transmission Date: 20151125
  Serious: No
  Sender: FDA-Public Use
  Company Number: US-ELI_LILLY_AND_COMPANY-US201009008165

PATIENT
  Sex: Male

DRUGS (2)
  1. LANTUS [Concomitant]
     Active Substance: INSULIN GLARGINE
     Indication: DIABETES MELLITUS
  2. HUMALOG [Suspect]
     Active Substance: INSULIN LISPRO
     Indication: DIABETES MELLITUS
     Dosage: 7 U, 3/D
     Dates: start: 20090328

REACTIONS (5)
  - Speech disorder [Unknown]
  - Drug dose omission [Unknown]
  - Weight decreased [Unknown]
  - Malaise [Unknown]
  - Hypokinesia [Unknown]

NARRATIVE: CASE EVENT DATE: 20100922
